FAERS Safety Report 22341941 (Version 1)
Quarter: 2023Q2

REPORT INFORMATION
  Report Type: Report from Study
  Country: US (occurrence: US)
  Receive Date: 20230518
  Receipt Date: 20230518
  Transmission Date: 20230722
  Serious: Yes (Hospitalization, Other)
  Sender: FDA-Public Use
  Company Number: US-JNJFOC-20220443250

PATIENT
  Age: 13 Year
  Sex: Female
  Weight: 65.6 kg

DRUGS (21)
  1. ESKETAMINE [Suspect]
     Active Substance: ESKETAMINE
     Indication: Major depression
     Dates: start: 20220218, end: 20220314
  2. ESKETAMINE [Suspect]
     Active Substance: ESKETAMINE
     Indication: Suicidal ideation
  3. PLACEBO [Suspect]
     Active Substance: UNSPECIFIED INGREDIENT
     Indication: Major depression
     Route: 048
     Dates: start: 20220218, end: 20220314
  4. PLACEBO [Suspect]
     Active Substance: UNSPECIFIED INGREDIENT
     Indication: Suicidal ideation
  5. ESCITALOPRAM [Concomitant]
     Active Substance: ESCITALOPRAM OXALATE
     Indication: Major depression
     Dosage: DAILY
     Route: 048
     Dates: start: 20210923, end: 20211211
  6. ESCITALOPRAM [Concomitant]
     Active Substance: ESCITALOPRAM OXALATE
     Dosage: DAILY
     Route: 048
     Dates: start: 20211212, end: 20220218
  7. ESCITALOPRAM [Concomitant]
     Active Substance: ESCITALOPRAM OXALATE
     Dosage: DAILY
     Route: 048
     Dates: start: 20220219
  8. TRAZODONE [Concomitant]
     Active Substance: TRAZODONE HYDROCHLORIDE
     Indication: Insomnia
     Dosage: DAILY
     Route: 048
     Dates: start: 20210923
  9. LITHIUM [Concomitant]
     Active Substance: LITHIUM
     Indication: Major depression
     Route: 048
     Dates: start: 20220103, end: 20220126
  10. LITHIUM [Concomitant]
     Active Substance: LITHIUM
     Route: 048
     Dates: start: 20220127, end: 20220217
  11. DROSPIRENONE\ETHINYL ESTRADIOL [Concomitant]
     Active Substance: DROSPIRENONE\ETHINYL ESTRADIOL
     Indication: Von Willebrand^s disease
     Dosage: DOSE: 3/0.3MG, DAILY
     Route: 048
     Dates: start: 20210730
  12. AMITRIPTYLINE HYDROCHLORIDE [Concomitant]
     Active Substance: AMITRIPTYLINE HYDROCHLORIDE
     Indication: Major depression
     Dosage: DAILY
     Route: 048
     Dates: start: 20210912, end: 20220217
  13. IRON [Concomitant]
     Active Substance: IRON
     Indication: Von Willebrand^s disease
     Dosage: DAILY
     Route: 048
     Dates: start: 20210730
  14. VITAMIN C [Concomitant]
     Active Substance: ASCORBIC ACID
     Indication: Vitamin supplementation
     Dosage: DAILY
     Route: 048
     Dates: start: 20210730
  15. HYDROXYZINE [Concomitant]
     Active Substance: HYDROXYZINE HYDROCHLORIDE
     Indication: Anxiety
     Dosage: ONCE
     Route: 048
     Dates: start: 20220220, end: 20220220
  16. HYDROXYZINE [Concomitant]
     Active Substance: HYDROXYZINE HYDROCHLORIDE
     Dosage: ONCE
     Route: 048
     Dates: start: 20220224, end: 20220224
  17. HYDROXYZINE [Concomitant]
     Active Substance: HYDROXYZINE HYDROCHLORIDE
     Dosage: AS NECESSARY
     Route: 048
     Dates: start: 20220225
  18. ARIPIPRAZOLE [Concomitant]
     Active Substance: ARIPIPRAZOLE
     Indication: Major depression
     Dosage: DAILY
     Route: 048
     Dates: start: 20220321, end: 20220428
  19. ARIPIPRAZOLE [Concomitant]
     Active Substance: ARIPIPRAZOLE
     Dosage: DAILY
     Route: 048
     Dates: start: 20220429, end: 20220512
  20. ARIPIPRAZOLE [Concomitant]
     Active Substance: ARIPIPRAZOLE
     Dosage: DAILY
     Route: 048
     Dates: start: 20220513
  21. LURASIDONE [Concomitant]
     Active Substance: LURASIDONE
     Indication: Major depression
     Dosage: DAILY
     Route: 048
     Dates: start: 20220130, end: 20220217

REACTIONS (1)
  - Status migrainosus [Recovering/Resolving]

NARRATIVE: CASE EVENT DATE: 20220411
